FAERS Safety Report 4505072-1 (Version None)
Quarter: 2004Q4

REPORT INFORMATION
  Report Type: 
  Country: None (occurrence: None)
  Receive Date: 20041117
  Receipt Date: 20041117
  Transmission Date: 20050328
  Serious: Yes (Hospitalization)
  Sender: FDA-Public Use
  Company Number: None

PATIENT
  Age: 77 Year
  Sex: Male

DRUGS (11)
  1. NIFEDIPINE [Suspect]
     Indication: HYPERTENSION
     Dosage: 90 MG QD
     Dates: start: 20030501
  2. BACLOFEN [Concomitant]
  3. SERTRALINE HCL [Concomitant]
  4. OMEPRAZOLE [Concomitant]
  5. DONEPEZIL HCL [Concomitant]
  6. HYOSCYAMINE [Concomitant]
  7. ZOCOR [Concomitant]
  8. OXYBUTYNIN [Concomitant]
  9. MEGESTROL [Concomitant]
  10. WARFARIN [Concomitant]
  11. CELECOXIB [Concomitant]

REACTIONS (2)
  - DIZZINESS [None]
  - ORTHOSTATIC HYPOTENSION [None]
